FAERS Safety Report 20641085 (Version 2)
Quarter: 2022Q2

REPORT INFORMATION
  Report Type: Spontaneous
  Country: CA (occurrence: CA)
  Receive Date: 20220327
  Receipt Date: 20220406
  Transmission Date: 20220720
  Serious: Yes (Hospitalization, Other)
  Sender: FDA-Public Use
  Company Number: CA-JNJFOC-20220352319

PATIENT
  Age: 77 Year
  Sex: Male

DRUGS (2)
  1. REMICADE [Suspect]
     Active Substance: INFLIXIMAB
     Indication: Product used for unknown indication
     Route: 042
  2. MESALAMINE [Suspect]
     Active Substance: MESALAMINE
     Indication: Product used for unknown indication
     Dosage: TABLET (DELAYED AND EXTENDED RELEASE)
     Route: 065

REACTIONS (3)
  - Hypothermia [Unknown]
  - Infusion related reaction [Unknown]
  - Rash [Unknown]
